FAERS Safety Report 12248700 (Version 1)
Quarter: 2016Q2

REPORT INFORMATION
  Report Type: Report from Study
  Country: TR (occurrence: TR)
  Receive Date: 20160408
  Receipt Date: 20160408
  Transmission Date: 20160815
  Serious: Yes (Other)
  Sender: FDA-Public Use
  Company Number: TR-ROCHE-1738928

PATIENT
  Age: 23 Year
  Sex: Female

DRUGS (3)
  1. WARFARIN [Concomitant]
     Active Substance: WARFARIN
     Dosage: SMALL DOSES TAKEN DURING INITIAL 10 WEEKS OF THE PREGNANCY
     Route: 065
  2. ALTEPLASE [Suspect]
     Active Substance: ALTEPLASE
     Indication: CARDIAC VALVE REPLACEMENT COMPLICATION
     Dosage: 6 H INFUSION OF 25 MG TISSUE-TYPE PLASMINOGEN ACTIVATOR (TPA) WITHOUT A BOLUS (IF NEEDED, REPEATING
     Route: 065
  3. WARFARIN [Concomitant]
     Active Substance: WARFARIN
     Route: 065

REACTIONS (3)
  - Maternal exposure during pregnancy [Unknown]
  - Vaginal haemorrhage [Unknown]
  - Abortion spontaneous [Unknown]
